FAERS Safety Report 9101494 (Version 1)
Quarter: 2013Q1

REPORT INFORMATION
  Report Type: Report from Study
  Country: US (occurrence: US)
  Receive Date: 20130218
  Receipt Date: 20130218
  Transmission Date: 20140127
  Serious: No
  Sender: FDA-Public Use
  Company Number: US-ABBOTT-12P-163-0945550-00

PATIENT
  Sex: Male
  Weight: 90.8 kg

DRUGS (7)
  1. SIMCOR [Suspect]
     Indication: HIGH DENSITY LIPOPROTEIN DECREASED
     Dosage: ?MG/20MG PER ORAL AT BEDTIME
     Route: 048
     Dates: start: 2009
  2. SIMCOR [Suspect]
     Indication: LOW DENSITY LIPOPROTEIN INCREASED
  3. LISINOPRIL [Concomitant]
     Indication: PRODUCT USED FOR UNKNOWN INDICATION
     Dosage: AT BEDTIME
     Route: 048
  4. ASA [Concomitant]
     Indication: PRODUCT USED FOR UNKNOWN INDICATION
     Dosage: AT BEDTIME
     Route: 048
  5. ASA [Concomitant]
     Dosage: AT BEDTIME
  6. UNKNOWN INHALERS [Concomitant]
     Indication: ASTHMA
  7. UNKNOWN NASAL SPRAY [Concomitant]
     Indication: HYPERSENSITIVITY

REACTIONS (3)
  - Flushing [Recovered/Resolved]
  - Paraesthesia [Unknown]
  - Blood glucose increased [Unknown]
